FAERS Safety Report 16829167 (Version 1)
Quarter: 2019Q3

REPORT INFORMATION
  Report Type: Spontaneous
  Country: US (occurrence: US)
  Receive Date: 20190919
  Receipt Date: 20190919
  Transmission Date: 20191005
  Serious: Yes (Other)
  Sender: FDA-Public Use
  Company Number: US-PURDUE-USA-2019-0148293

PATIENT
  Age: 77 Year
  Sex: Female

DRUGS (2)
  1. LINACLOTIDE [Suspect]
     Active Substance: LINACLOTIDE
     Indication: PRODUCT USED FOR UNKNOWN INDICATION
     Dosage: 72 MCG, UNK
     Route: 065
  2. SENOKOT [Suspect]
     Active Substance: SENNOSIDES
     Indication: PRODUCT USED FOR UNKNOWN INDICATION
     Route: 048

REACTIONS (10)
  - Depression [Not Recovered/Not Resolved]
  - Muscle spasms [Unknown]
  - Hypertension [Not Recovered/Not Resolved]
  - Disturbance in attention [Unknown]
  - Diarrhoea [Unknown]
  - Insomnia [Unknown]
  - Anxiety [Unknown]
  - Abdominal pain upper [Unknown]
  - Incontinence [Unknown]
  - Ovarian cancer metastatic [Unknown]

NARRATIVE: CASE EVENT DATE: 2003
